FAERS Safety Report 7926073-7 (Version None)
Quarter: 2011Q4

REPORT INFORMATION
  Report Type: 
  Country: None (occurrence: None)
  Receive Date: 20111118
  Receipt Date: 20110418
  Transmission Date: 20120403
  Serious: No
  Sender: FDA-Public Use
  Company Number: US-AMGEN-USASP2011020261

PATIENT
  Age: 47 Year
  Sex: Female

DRUGS (2)
  1. ENBREL [Suspect]
     Indication: PSORIATIC ARTHROPATHY
     Dosage: 50 MG, 2 TIMES/WK
     Dates: start: 20100126
  2. ENBREL [Suspect]
     Indication: PSORIASIS

REACTIONS (6)
  - COUGH [None]
  - EAR PAIN [None]
  - HEADACHE [None]
  - PYREXIA [None]
  - SNEEZING [None]
  - INJECTION SITE PAIN [None]
